FAERS Safety Report 8836081 (Version 1)
Quarter: 2012Q4

REPORT INFORMATION
  Report Type: 
  Country: US (occurrence: US)
  Receive Date: 20121011
  Receipt Date: 20121011
  Transmission Date: 20130627
  Serious: Yes (Hospitalization, Other)
  Sender: FDA-Public Use
  Company Number: PHEH2012US019934

PATIENT
  Sex: Female

DRUGS (7)
  1. DIOVAN [Suspect]
     Dosage: UNK UKN, UNK
  2. DIOVAN HCT [Suspect]
     Dosage: UNK UKN, UNK
  3. HUMULIN [Concomitant]
     Dosage: UNK UKN, UNK
  4. METFORMIN [Concomitant]
     Dosage: UNK UKN, UNK
  5. LIPITOR [Concomitant]
     Dosage: UNK UKN, UNK
  6. PLAVIX [Concomitant]
     Dosage: UNK UKN, UNK
  7. DEPAKOTE [Concomitant]
     Dosage: UNK UKN, UNK

REACTIONS (6)
  - Mental disorder [Unknown]
  - Upper limb fracture [Unknown]
  - Jaw fracture [Unknown]
  - Cardiac disorder [Unknown]
  - Oedema peripheral [Unknown]
  - Hypertension [Unknown]
